FAERS Safety Report 10449277 (Version 1)
Quarter: 2014Q3

REPORT INFORMATION
  Report Type: Spontaneous
  Country: IT (occurrence: IT)
  Receive Date: 20140912
  Receipt Date: 20140912
  Transmission Date: 20150326
  Serious: Yes (Hospitalization)
  Sender: FDA-Public Use
  Company Number: IT-JNJFOC-20140906014

PATIENT
  Age: 94 Year
  Sex: Female

DRUGS (7)
  1. LASIX [Concomitant]
     Active Substance: FUROSEMIDE
     Route: 048
  2. TAPAZOLE [Concomitant]
     Active Substance: METHIMAZOLE
     Route: 048
  3. XARELTO [Suspect]
     Active Substance: RIVAROXABAN
     Indication: ATRIAL FIBRILLATION
     Route: 048
     Dates: start: 20130901, end: 20140609
  4. XARELTO [Suspect]
     Active Substance: RIVAROXABAN
     Indication: CEREBROVASCULAR ACCIDENT PROPHYLAXIS
     Route: 048
     Dates: start: 20130901, end: 20140609
  5. ZYLORIC [Concomitant]
     Active Substance: ALLOPURINOL
     Route: 048
  6. MICARDIS [Concomitant]
     Active Substance: TELMISARTAN
     Route: 048
  7. LANOXIN [Concomitant]
     Active Substance: DIGOXIN
     Route: 048

REACTIONS (2)
  - Melaena [Unknown]
  - Abdominal pain [Unknown]

NARRATIVE: CASE EVENT DATE: 20140609
